FAERS Safety Report 12454706 (Version 1)
Quarter: 2016Q2

REPORT INFORMATION
  Report Type: Report from Study
  Country: ES (occurrence: ES)
  Receive Date: 20160610
  Receipt Date: 20160610
  Transmission Date: 20160815
  Serious: Yes (Death, Hospitalization, Other)
  Sender: FDA-Public Use
  Company Number: ES-BRISTOL-MYERS SQUIBB COMPANY-BMS-2016-044171

PATIENT
  Age: 50 Year
  Sex: Male

DRUGS (1)
  1. NIVOLUMAB [Suspect]
     Active Substance: NIVOLUMAB
     Indication: ADENOCARCINOMA
     Dosage: 3 MG/KG, UNK
     Route: 065
     Dates: start: 20150922, end: 20151005

REACTIONS (4)
  - Dyspnoea [Fatal]
  - Packed red blood cell transfusion [Unknown]
  - Malignant neoplasm progression [Fatal]
  - Aspiration pleural cavity [Unknown]

NARRATIVE: CASE EVENT DATE: 20151013
